FAERS Safety Report 21448747 (Version 1)
Quarter: 2022Q4

REPORT INFORMATION
  Report Type: Spontaneous
  Country: JP (occurrence: JP)
  Receive Date: 20221013
  Receipt Date: 20221013
  Transmission Date: 20230112
  Serious: Yes (Hospitalization)
  Sender: FDA-Public Use
  Company Number: JP-MACLEODS PHARMACEUTICALS US LTD-MAC2022037703

PATIENT

DRUGS (1)
  1. TRIAMCINOLONE ACETONIDE [Suspect]
     Active Substance: TRIAMCINOLONE ACETONIDE
     Indication: Prophylaxis
     Dosage: 120 MILLIGRAM, LOCALLY INJECTED USING A 25-GAUGE NEEDLE)
     Route: 026

REACTIONS (2)
  - Oesophageal perforation [Recovered/Resolved]
  - Mediastinitis [Recovered/Resolved]
